FAERS Safety Report 6061518-1 (Version None)
Quarter: 2009Q1

REPORT INFORMATION
  Report Type: 
  Country: None (occurrence: None)
  Receive Date: 20090202
  Receipt Date: 20090121
  Transmission Date: 20090719
  Serious: Yes (Other)
  Sender: FDA-Public Use
  Company Number: CN-ROCHE-609239

PATIENT
  Age: 50 Year
  Sex: Female

DRUGS (1)
  1. XELODA [Suspect]
     Indication: BREAST CANCER
     Dosage: DURATION REPORTED AS 8 COURSES.
     Route: 048
     Dates: start: 20070101

REACTIONS (2)
  - BREAST CANCER RECURRENT [None]
  - METASTASES TO PLEURA [None]
